FAERS Safety Report 25184905 (Version 1)
Quarter: 2025Q2

REPORT INFORMATION
  Report Type: Report from Study
  Country: AR (occurrence: AR)
  Receive Date: 20250410
  Receipt Date: 20250410
  Transmission Date: 20250716
  Serious: Yes (Hospitalization, Other)
  Sender: AMGEN
  Company Number: AR-AMGEN-ARGSL2024187735

PATIENT
  Age: 63 Year
  Sex: Male

DRUGS (1)
  1. VECTIBIX [Suspect]
     Active Substance: PANITUMUMAB
     Indication: Colorectal cancer
     Route: 065
     Dates: start: 20240827

REACTIONS (14)
  - Decreased immune responsiveness [Unknown]
  - External ear neoplasm malignant [Unknown]
  - Syncope [Unknown]
  - Catheter placement [Unknown]
  - Neutropenia [Unknown]
  - Acne [Not Recovered/Not Resolved]
  - Erythema [Unknown]
  - Drug hypersensitivity [Not Recovered/Not Resolved]
  - Device kink [Unknown]
  - Pyrexia [Unknown]
  - Stomatitis [Unknown]
  - Asthenia [Unknown]
  - Pruritus [Unknown]
  - Drug effect less than expected [Unknown]

NARRATIVE: CASE EVENT DATE: 20240101
